FAERS Safety Report 22295780 (Version 2)
Quarter: 2023Q2

REPORT INFORMATION
  Report Type: Spontaneous
  Country: US (occurrence: US)
  Receive Date: 20230508
  Receipt Date: 20230515
  Transmission Date: 20230721
  Serious: No
  Sender: FDA-Public Use
  Company Number: US-VERTEX PHARMACEUTICALS-2023-006496

PATIENT
  Sex: Female

DRUGS (1)
  1. TRIKAFTA [Suspect]
     Active Substance: ELEXACAFTOR\IVACAFTOR\TEZACAFTOR
     Indication: Cystic fibrosis
     Dosage: UNKNOWN DOSAGE REGIMEN
     Route: 048

REACTIONS (7)
  - Liver disorder [Unknown]
  - Mood swings [Unknown]
  - Intermenstrual bleeding [Unknown]
  - Muscle spasms [Unknown]
  - Hormone level abnormal [Unknown]
  - Premenstrual syndrome [Unknown]
  - Product dose omission issue [Unknown]
